FAERS Safety Report 7176621-2 (Version None)
Quarter: 2010Q4

REPORT INFORMATION
  Report Type: 
  Country: None (occurrence: None)
  Receive Date: 20101220
  Receipt Date: 20101207
  Transmission Date: 20110411
  Serious: Yes (Other)
  Sender: FDA-Public Use
  Company Number: PHHY2010US46166

PATIENT
  Sex: Female

DRUGS (5)
  1. AFINITOR [Suspect]
     Indication: NEOPLASM MALIGNANT
     Dosage: 10 MG, QD
     Route: 048
     Dates: start: 20100607, end: 20101016
  2. AFINITOR [Suspect]
     Dosage: 5 MG
     Route: 048
     Dates: start: 20100623, end: 20101101
  3. COZAAR [Concomitant]
     Dosage: 2.5 MG DAILY
     Route: 048
  4. LEVOTHROID [Concomitant]
     Dosage: 75 MCG DAILY
     Route: 048
  5. ZYPREXA [Concomitant]
     Dosage: 2.5 MG QHS
     Route: 048

REACTIONS (12)
  - BRONCHITIS [None]
  - COUGH [None]
  - FATIGUE [None]
  - HAEMORRHAGE [None]
  - INFLAMMATION [None]
  - INGROWING NAIL [None]
  - LOCALISED INFECTION [None]
  - LUNG INFILTRATION [None]
  - NAUSEA [None]
  - OEDEMA PERIPHERAL [None]
  - OROPHARYNGEAL PAIN [None]
  - PNEUMONIA [None]
